FAERS Safety Report 21101769 (Version 3)
Quarter: 2022Q3

REPORT INFORMATION
  Report Type: Report from Study
  Country: FR (occurrence: None)
  Receive Date: 20220719
  Receipt Date: 20220811
  Transmission Date: 20221027
  Serious: Yes (Hospitalization)
  Sender: FDA-Public Use
  Company Number: 2022A251782

PATIENT
  Age: 59 Year
  Sex: Male
  Weight: 59 kg

DRUGS (2)
  1. EVUSHELD [Suspect]
     Active Substance: CILGAVIMAB\TIXAGEVIMAB
     Indication: COVID-19 prophylaxis
     Dosage: CILGAVIMAB 150MG/TIXAGEVIMAB 150MG, 1 DOSAGE FORM ONCE/SINGLE ADMINISTRATION
     Route: 030
     Dates: start: 20220119, end: 20220119
  2. OBINUTUZUMAB [Suspect]
     Active Substance: OBINUTUZUMAB
     Indication: Follicular lymphoma
     Dosage: 1000.0MG UNKNOWN
     Route: 042
     Dates: start: 202007, end: 202112

REACTIONS (1)
  - Agranulocytosis [Recovered/Resolved]

NARRATIVE: CASE EVENT DATE: 20220128
